FAERS Safety Report 4526755-3 (Version None)
Quarter: 2004Q4

REPORT INFORMATION
  Report Type: 
  Country: None (occurrence: None)
  Receive Date: 20041213
  Receipt Date: 20041130
  Transmission Date: 20050328
  Serious: Yes (Death)
  Sender: FDA-Public Use
  Company Number: 200420931BWH

PATIENT

DRUGS (1)
  1. TRASYLOL [Suspect]

REACTIONS (5)
  - MULTI-ORGAN FAILURE [None]
  - POSTOPERATIVE THORACIC PROCEDURE COMPLICATION [None]
  - RENAL FAILURE [None]
  - RESPIRATORY FAILURE [None]
  - THROMBOSIS [None]
